FAERS Safety Report 21805820 (Version 2)
Quarter: 2023Q1

REPORT INFORMATION
  Report Type: Report from Study
  Country: CA (occurrence: CA)
  Receive Date: 20230102
  Receipt Date: 20230220
  Transmission Date: 20230417
  Serious: Yes (Hospitalization)
  Sender: FDA-Public Use
  Company Number: CA-GLAXOSMITHKLINE-CA2022195918

PATIENT

DRUGS (1)
  1. MEPOLIZUMAB [Suspect]
     Active Substance: MEPOLIZUMAB
     Indication: Asthma
     Dosage: 100 MG, Z (EVERY 4 WEEKS)
     Route: 058
     Dates: start: 20180828

REACTIONS (5)
  - Influenza [Unknown]
  - Dyspnoea [Unknown]
  - Cough [Unknown]
  - Hyperhidrosis [Unknown]
  - Lung disorder [Unknown]

NARRATIVE: CASE EVENT DATE: 20221211
